FAERS Safety Report 8429798-2 (Version None)
Quarter: 2012Q2

REPORT INFORMATION
  Report Type: 
  Country: None (occurrence: None)
  Receive Date: 20120518
  Receipt Date: 20120508
  Transmission Date: 20120825
  Serious: Yes (Hospitalization)
  Sender: FDA-Public Use
  Company Number: 2012PROUSA01358

PATIENT
  Age: 83 Year
  Sex: Male
  Weight: 56.7 kg

DRUGS (12)
  1. PROVENGE [Suspect]
  2. PROVENGE [Suspect]
     Indication: PROSTATE CANCER METASTATIC
     Dosage: 250 ML, SINGLE, INTRAVENOUS; 250 ML, SINGLE, INTRVENOUS
     Route: 042
     Dates: start: 20120405, end: 20120405
  3. PRINIVIL (LISNOPRIL DIHYDRATE) [Concomitant]
  4. BETAPACE (SOLTALOL HYDROCHLORIDE) [Concomitant]
  5. TERAZOSIN (TERAZODIN) [Concomitant]
  6. IMODIUM [Concomitant]
  7. MEVACOR [Concomitant]
  8. HYDROCHLOROTHIAZIDE [Suspect]
     Dosage: 25 MG, ORAL
     Route: 048
  9. MULTIVITAMIN /00097801/ (ASCORBIC ACID, CALCIUM PANTOTHENATE, EROGOCAL [Concomitant]
  10. MYCOSTATIN [Concomitant]
  11. ALPHAGAN [Concomitant]
  12. TRAVATAN [Concomitant]

REACTIONS (8)
  - PULMONARY OEDEMA [None]
  - DEHYDRATION [None]
  - SYNOVIAL RUPTURE [None]
  - HYPONATRAEMIA [None]
  - INSOMNIA [None]
  - CHRONIC SINUSITIS [None]
  - ORAL CANDIDIASIS [None]
  - HYPERTENSION [None]
